FAERS Safety Report 6171139-8 (Version None)
Quarter: 2009Q2

REPORT INFORMATION
  Report Type: 
  Country: None (occurrence: None)
  Receive Date: 20090428
  Receipt Date: 20090428
  Transmission Date: 20091009
  Serious: Yes (Hospitalization)
  Sender: FDA-Public Use
  Company Number: None

PATIENT
  Age: 69 Year
  Sex: Male
  Weight: 81.6475 kg

DRUGS (1)
  1. KEPPRA [Suspect]
     Indication: CONVULSION
     Dosage: 500MG ONE DAILY PO
     Route: 048
     Dates: start: 20080419, end: 20080713

REACTIONS (9)
  - AMNESIA [None]
  - EATING DISORDER [None]
  - GAIT DISTURBANCE [None]
  - HALLUCINATION [None]
  - HOSTILITY [None]
  - IMPAIRED SELF-CARE [None]
  - INCOHERENT [None]
  - SPEECH DISORDER [None]
  - TREMOR [None]
